FAERS Safety Report 17787717 (Version 3)
Quarter: 2020Q3

REPORT INFORMATION
  Report Type: Report from Study
  Country: MX (occurrence: MX)
  Receive Date: 20200515
  Receipt Date: 20200918
  Transmission Date: 20201102
  Serious: Yes (Death)
  Sender: FDA-Public Use
  Company Number: MX-ADVANZ PHARMA-202004005019

PATIENT

DRUGS (7)
  1. MEROPENEM. [Concomitant]
     Active Substance: MEROPENEM
  2. FUROSEMIDE. [Concomitant]
     Active Substance: FUROSEMIDE
  3. CEFTRIAXONE. [Concomitant]
     Active Substance: CEFTRIAXONE
  4. METHYLPREDNISOLONE. [Concomitant]
     Active Substance: METHYLPREDNISOLONE
  5. HYDROXYCHLOROQUINE [Suspect]
     Active Substance: HYDROXYCHLOROQUINE
     Indication: COVID-19
     Dosage: 200 MG, BID (Q12H)
     Dates: start: 20200426, end: 20200504
  6. CLARITHROMYCIN. [Concomitant]
     Active Substance: CLARITHROMYCIN
  7. ENOXAPARIN [Concomitant]
     Active Substance: ENOXAPARIN

REACTIONS (2)
  - Off label use [Unknown]
  - Haemodynamic instability [Fatal]

NARRATIVE: CASE EVENT DATE: 20200426
